FAERS Safety Report 4533327-3 (Version None)
Quarter: 2004Q4

REPORT INFORMATION
  Report Type: 
  Country: None (occurrence: None)
  Receive Date: 20041221
  Receipt Date: 20040811
  Transmission Date: 20050328
  Serious: Yes (Other)
  Sender: FDA-Public Use
  Company Number: PHBS2004BR10672

PATIENT
  Sex: Female

DRUGS (1)
  1. VOLTAREN [Suspect]
     Route: 030

REACTIONS (1)
  - PARALYSIS [None]
